FAERS Safety Report 25900599 (Version 1)
Quarter: 2025Q4

REPORT INFORMATION
  Report Type: Spontaneous
  Country: US (occurrence: None)
  Receive Date: 20251008
  Receipt Date: 20251008
  Transmission Date: 20260118
  Serious: No
  Sender: FDA-CTU
  Company Number: None

PATIENT
  Sex: Female

DRUGS (1)
  1. COPIKTRA [Suspect]
     Active Substance: DUVELISIB
     Indication: T-cell prolymphocytic leukaemia
     Dosage: 25 MG BID ORAL
     Route: 048

REACTIONS (3)
  - Renal disorder [None]
  - Liver disorder [None]
  - Internal haemorrhage [None]
